FAERS Safety Report 9461961 (Version 1)
Quarter: 2013Q3

REPORT INFORMATION
  Report Type: Spontaneous
  Country: US (occurrence: US)
  Receive Date: 20130816
  Receipt Date: 20130816
  Transmission Date: 20140515
  Serious: No
  Sender: FDA-Public Use
  Company Number: US-BRISTOL-MYERS SQUIBB COMPANY-18776989

PATIENT
  Sex: Female

DRUGS (4)
  1. GLUCOPHAGE TABS 500 MG [Suspect]
     Indication: DIABETES MELLITUS
  2. GLUCOVANCE [Suspect]
     Indication: DIABETES MELLITUS
  3. GLYBURIDE [Suspect]
     Indication: DIABETES MELLITUS
  4. AMARYL [Suspect]
     Indication: DIABETES MELLITUS

REACTIONS (2)
  - Drug ineffective [Unknown]
  - Blood glucose decreased [Unknown]
